FAERS Safety Report 25314376 (Version 4)
Quarter: 2025Q3

REPORT INFORMATION
  Report Type: Report from Study
  Country: US (occurrence: US)
  Receive Date: 20250514
  Receipt Date: 20250717
  Transmission Date: 20251021
  Serious: Yes (Life-Threatening, Hospitalization, Other)
  Sender: SYNDAX
  Company Number: US-SYNDAX PHARMACEUTICALS, INC.-2025US000404

PATIENT
  Age: 1 Year
  Sex: Female

DRUGS (8)
  1. REVUFORJ [Suspect]
     Active Substance: REVUMENIB CITRATE
     Indication: KMT2A gene mutation
     Dosage: 50 MILLIGRAM, BID
     Route: 048
     Dates: start: 20250305, end: 20250428
  2. EMLA                               /00675501/ [Concomitant]
     Indication: Product used for unknown indication
     Route: 061
  3. LORAZEPAM [Concomitant]
     Active Substance: LORAZEPAM
     Indication: Nausea
     Dosage: 0.15 MILLILITER, TID AS NEEDED
     Route: 048
  4. NEXIUM [Concomitant]
     Active Substance: ESOMEPRAZOLE MAGNESIUM
     Indication: Product used for unknown indication
     Dosage: 5 MILLIGRAM, DAILY
     Route: 048
  5. MIRALAX [Concomitant]
     Active Substance: POLYETHYLENE GLYCOL 3350
     Indication: Product used for unknown indication
     Dosage: 4.25 GRAM, BID
     Route: 048
  6. SENOKOT [Concomitant]
     Active Substance: SENNOSIDES
     Indication: Product used for unknown indication
     Dosage: 1.3 MILLILITER, BID, AS NEEDED
     Route: 048
  7. URSODIOL [Concomitant]
     Active Substance: URSODIOL
     Indication: Product used for unknown indication
     Dosage: 150 MILLIGRAM, TID
     Route: 048
  8. NOXAFIL [Concomitant]
     Active Substance: POSACONAZOLE
     Indication: Product used for unknown indication

REACTIONS (2)
  - Pericardial effusion [Recovering/Resolving]
  - Pericarditis infective [Unknown]

NARRATIVE: CASE EVENT DATE: 20250428
